FAERS Safety Report 9276955 (Version 1)
Quarter: 2013Q2

REPORT INFORMATION
  Report Type: Spontaneous
  Country: US (occurrence: US)
  Receive Date: 20130507
  Receipt Date: 20130507
  Transmission Date: 20140414
  Serious: No
  Sender: FDA-Public Use
  Company Number: US-ASTRAZENECA-2013SE28403

PATIENT
  Age: 68 Year
  Sex: Female
  Weight: 70.8 kg

DRUGS (3)
  1. SEROQUEL [Suspect]
     Indication: DEPRESSION
     Route: 048
     Dates: start: 20130417
  2. CELEXA [Concomitant]
     Indication: DEPRESSION
     Route: 048
     Dates: start: 20130325
  3. LORAZEPAM [Concomitant]
     Indication: ANXIETY
     Route: 048
     Dates: start: 20130314, end: 20130417

REACTIONS (5)
  - Abnormal behaviour [Unknown]
  - Condition aggravated [Unknown]
  - Activities of daily living impaired [Unknown]
  - Crying [Unknown]
  - Weight decreased [Not Recovered/Not Resolved]
